FAERS Safety Report 20513894 (Version 1)
Quarter: 2022Q1

REPORT INFORMATION
  Report Type: Spontaneous
  Country: US (occurrence: US)
  Receive Date: 20220224
  Receipt Date: 20220224
  Transmission Date: 20220423
  Serious: No
  Sender: FDA-Public Use
  Company Number: US-AMNEAL PHARMACEUTICALS-2021-AMRX-04410

PATIENT
  Age: 55 Year
  Sex: Female

DRUGS (1)
  1. RYTARY [Suspect]
     Active Substance: CARBIDOPA\LEVODOPA
     Indication: Parkinson^s disease
     Dosage: 10 CAPSULES, DAILY (4 CAPSULES IN THE MORNING, 3 CAPSULES IN THE AFTERNOON, 3 CAPSULES AT NIGHT)
     Route: 048
     Dates: start: 20211022

REACTIONS (2)
  - Drug ineffective [Not Recovered/Not Resolved]
  - Bradykinesia [Recovering/Resolving]

NARRATIVE: CASE EVENT DATE: 20211022
